FAERS Safety Report 9003895 (Version 2)
Quarter: 2013Q1

REPORT INFORMATION
  Report Type: Spontaneous
  Country: US (occurrence: US)
  Receive Date: 20130108
  Receipt Date: 20130201
  Transmission Date: 20140127
  Serious: Yes (Other)
  Sender: FDA-Public Use
  Company Number: US-BAYER-2013-002684

PATIENT
  Age: 33 Year
  Sex: Female
  Weight: 63.49 kg

DRUGS (5)
  1. MIRENA [Suspect]
     Indication: CONTRACEPTION
     Dosage: 20 MCG/24HR, CONT
     Route: 015
     Dates: start: 20121208, end: 20121220
  2. MIRENA [Suspect]
     Indication: CONTRACEPTION
     Dosage: 20 MCG/24HR, CONT
     Dates: start: 20121220
  3. PRILOSEC [Concomitant]
  4. FLUOXETINE [Concomitant]
  5. WELLBUTRIN [Concomitant]

REACTIONS (6)
  - Device dislocation [Recovered/Resolved]
  - Device dislocation [Recovered/Resolved]
  - Abdominal pain lower [Recovered/Resolved]
  - Vaginal haemorrhage [None]
  - Procedural pain [None]
  - Device difficult to use [None]
